FAERS Safety Report 15300207 (Version 1)
Quarter: 2018Q4

REPORT INFORMATION
  Report Type: Spontaneous
  Country: ES (occurrence: ES)
  Receive Date: 20180821
  Receipt Date: 20180821
  Transmission Date: 20190204
  Serious: Yes (Other)
  Sender: FDA-Public Use
  Company Number: ES-APOTEX-2018AP019499

PATIENT
  Age: 73 Year
  Sex: Male

DRUGS (2)
  1. CIPROFLOXACIN. [Suspect]
     Active Substance: CIPROFLOXACIN
     Indication: PRODUCT USED FOR UNKNOWN INDICATION
     Dosage: UNK
     Route: 065
  2. MIDECAMYCIN ACETATE [Suspect]
     Active Substance: MIDECAMYCIN ACETATE
     Indication: PRODUCT USED FOR UNKNOWN INDICATION
     Dosage: UNK
     Route: 065

REACTIONS (3)
  - Hepatocellular injury [Unknown]
  - Idiosyncratic drug reaction [Unknown]
  - Drug-induced liver injury [Unknown]
